FAERS Safety Report 13415354 (Version 1)
Quarter: 2017Q2

REPORT INFORMATION
  Report Type: Spontaneous
  Country: CH (occurrence: GB)
  Receive Date: 20170406
  Receipt Date: 20170406
  Transmission Date: 20170830
  Serious: Yes (Hospitalization)
  Sender: FDA-Public Use
  Company Number: CH-LPDUSPRD-20170371

PATIENT
  Age: 25 Year
  Sex: Female
  Weight: 63 kg

DRUGS (1)
  1. FERINJECT [Suspect]
     Active Substance: FERRIC CARBOXYMALTOSE
     Dosage: 500 MG
     Route: 041

REACTIONS (6)
  - Feeling abnormal [Unknown]
  - Yawning [Unknown]
  - Dizziness [Unknown]
  - Hypotension [Recovered/Resolved]
  - Nausea [Unknown]
  - Exposure during pregnancy [Unknown]

NARRATIVE: CASE EVENT DATE: 20170228
